FAERS Safety Report 18522785 (Version 1)
Quarter: 2020Q4

REPORT INFORMATION
  Report Type: Spontaneous
  Country: AU (occurrence: AU)
  Receive Date: 20201119
  Receipt Date: 20201119
  Transmission Date: 20210114
  Serious: Yes (Hospitalization, Other)
  Sender: FDA-Public Use
  Company Number: NVSC2020AU297068

PATIENT
  Age: 57 Year
  Sex: Female

DRUGS (14)
  1. CICLOSPORIN [Suspect]
     Active Substance: CYCLOSPORINE
     Dosage: 150 MG
     Route: 065
  2. AZATHIOPRINE. [Suspect]
     Active Substance: AZATHIOPRINE
     Indication: IMMUNE THROMBOCYTOPENIA
     Dosage: UNK
     Route: 065
     Dates: start: 202002
  3. PREDNISOLONE. [Suspect]
     Active Substance: PREDNISOLONE
     Dosage: 15 MG, UNKNOWN
     Route: 065
     Dates: start: 202007
  4. PREDNISOLONE. [Suspect]
     Active Substance: PREDNISOLONE
     Indication: PRODUCT USED FOR UNKNOWN INDICATION
     Dosage: 20 MG, QD
     Route: 065
  5. PREDNISOLONE. [Suspect]
     Active Substance: PREDNISOLONE
     Dosage: 12 UNK
     Route: 065
     Dates: start: 202010
  6. AZATHIOPRINE. [Suspect]
     Active Substance: AZATHIOPRINE
     Dosage: 75 MG, UNKNOWN
     Route: 065
     Dates: start: 202003
  7. AZATHIOPRINE. [Suspect]
     Active Substance: AZATHIOPRINE
     Dosage: 100 MG, UNKNOWN
     Route: 065
     Dates: start: 202004
  8. VINCRISTINE [Suspect]
     Active Substance: VINCRISTINE
     Dosage: UNK, QW
     Route: 065
     Dates: start: 201512
  9. RITUXIMAB. [Suspect]
     Active Substance: RITUXIMAB
     Indication: IMMUNE THROMBOCYTOPENIA
     Dosage: UNK
     Route: 065
     Dates: start: 201306
  10. VINCRISTINE [Suspect]
     Active Substance: VINCRISTINE
     Indication: PRODUCT USED FOR UNKNOWN INDICATION
     Dosage: UNK UNK, QW3
     Route: 065
     Dates: start: 201810, end: 201812
  11. CICLOSPORIN [Suspect]
     Active Substance: CYCLOSPORINE
     Dosage: 150 MG
     Route: 065
  12. ELTROMBOPAG [Suspect]
     Active Substance: ELTROMBOPAG
     Indication: IMMUNE THROMBOCYTOPENIA
     Dosage: UNK (50)
     Route: 065
     Dates: start: 201810, end: 201812
  13. ELTROMBOPAG [Suspect]
     Active Substance: ELTROMBOPAG
     Dosage: 75 MG, UNKNOWN
     Route: 065
     Dates: start: 2019, end: 202002
  14. CICLOSPORIN [Suspect]
     Active Substance: CYCLOSPORINE
     Indication: IMMUNE THROMBOCYTOPENIA
     Dosage: UNK UNK, BID (250 UNSPECIFIED UNTIS)
     Route: 065

REACTIONS (13)
  - Cellulitis [Unknown]
  - Cerebrovascular accident [Unknown]
  - Thrombocytosis [Unknown]
  - Drug ineffective [Unknown]
  - Bacteraemia [Unknown]
  - Carotid artery stenosis [Unknown]
  - Abscess [Unknown]
  - Product use in unapproved indication [Unknown]
  - Rectal haemorrhage [Unknown]
  - Marrow hyperplasia [Unknown]
  - Platelet destruction increased [Unknown]
  - Megakaryocytes increased [Unknown]
  - Epistaxis [Unknown]

NARRATIVE: CASE EVENT DATE: 201306
